FAERS Safety Report 9417203 (Version 2)
Quarter: 2013Q3

REPORT INFORMATION
  Report Type: Spontaneous
  Country: US (occurrence: US)
  Receive Date: 20130724
  Receipt Date: 20130805
  Transmission Date: 20140515
  Serious: Yes (Disabling)
  Sender: FDA-Public Use
  Company Number: US-MERCK-1307USA011527

PATIENT
  Age: 45 Year
  Sex: Female

DRUGS (4)
  1. SAPHRIS [Suspect]
     Indication: BIPOLAR DISORDER
     Dosage: 10 MG, BID, TOTAL DAILY DOSE 5-20MG
     Route: 060
     Dates: start: 201211
  2. ZYPREXA [Concomitant]
     Dosage: 5 MG, QD
     Route: 048
  3. DEPARON [Concomitant]
     Dosage: 2500 MG, QD
     Route: 048
  4. CAMPRAL [Concomitant]
     Dosage: 666 MG, BID
     Route: 048

REACTIONS (2)
  - Flushing [Recovered/Resolved]
  - Dyskinesia [Not Recovered/Not Resolved]
